FAERS Safety Report 23637469 (Version 1)
Quarter: 2024Q1

REPORT INFORMATION
  Report Type: Spontaneous
  Country: CH (occurrence: CH)
  Receive Date: 20240315
  Receipt Date: 20240315
  Transmission Date: 20240409
  Serious: Yes (Other)
  Sender: FDA-Public Use
  Company Number: CH-PHARMAESSENTIA CORPORATION-CH-2023-PEC-002489

PATIENT
  Age: 52 Year
  Sex: Female

DRUGS (7)
  1. BESREMI [Suspect]
     Active Substance: ROPEGINTERFERON ALFA-2B-NJFT
     Indication: Essential thrombocythaemia
     Dosage: 100 MICROGRAM, Q2W
     Route: 058
     Dates: start: 20230324
  2. BESREMI [Suspect]
     Active Substance: ROPEGINTERFERON ALFA-2B-NJFT
     Dosage: 300 MICROGRAM,  START DATE UNKNOWN, DOSE WAS GRADUALLY INCREASED UP TO 300 MICROG EVERY 2 WEEKS Q2W
     Route: 058
  3. BESREMI [Suspect]
     Active Substance: ROPEGINTERFERON ALFA-2B-NJFT
     Dosage: 250 MICROGRAM, ) DOSE REDUCED BECAUSE THE PATIENT IS RESPONDING WELL TO TREATMENT. Q2W
     Route: 058
  4. ASPIRIN [Concomitant]
     Active Substance: ASPIRIN
     Indication: Product used for unknown indication
     Dosage: UNK
     Route: 065
  5. SINTROM [Concomitant]
     Active Substance: ACENOCOUMAROL
     Indication: Product used for unknown indication
     Dosage: UNK
     Route: 065
  6. ATORVASTATIN [Concomitant]
     Active Substance: ATORVASTATIN
     Indication: Product used for unknown indication
     Dosage: UNK
     Route: 065
  7. RAMIPRIL [Concomitant]
     Active Substance: RAMIPRIL
     Indication: Product used for unknown indication
     Dosage: UNK
     Route: 065

REACTIONS (3)
  - Autoimmune hypothyroidism [Recovering/Resolving]
  - Off label use [Unknown]
  - Labelled drug-disease interaction medication error [Unknown]

NARRATIVE: CASE EVENT DATE: 20230324
